FAERS Safety Report 22331710 (Version 1)
Quarter: 2023Q2

REPORT INFORMATION
  Report Type: Spontaneous
  Country: US (occurrence: US)
  Receive Date: 20230517
  Receipt Date: 20230517
  Transmission Date: 20230722
  Serious: Yes (Other)
  Sender: FDA-Public Use
  Company Number: US-BAYER-2023A068357

PATIENT
  Age: 56 Year
  Sex: Male

DRUGS (8)
  1. ASPIRIN [Suspect]
     Active Substance: ASPIRIN
  2. ATORVASTATIN [Concomitant]
     Active Substance: ATORVASTATIN
  3. SEVELAMER [Concomitant]
     Active Substance: SEVELAMER
  4. CARVEDILOL [Concomitant]
     Active Substance: CARVEDILOL
  5. CLOPIDOGREL [Concomitant]
     Active Substance: CLOPIDOGREL BISULFATE
  6. INSULIN NOS [Concomitant]
     Active Substance: INSULIN NOS
  7. LOSARTAN [Concomitant]
     Active Substance: LOSARTAN
  8. TORSEMIDE [Concomitant]
     Active Substance: TORSEMIDE

REACTIONS (3)
  - Haematochezia [None]
  - Nausea [None]
  - Vomiting [None]
